FAERS Safety Report 19310887 (Version 3)
Quarter: 2021Q3

REPORT INFORMATION
  Report Type: Spontaneous
  Country: EG (occurrence: EG)
  Receive Date: 20210526
  Receipt Date: 20210702
  Transmission Date: 20211014
  Serious: Yes (Other)
  Sender: FDA-Public Use
  Company Number: NVSC2021EG099373

PATIENT
  Age: 25 Year
  Sex: Male

DRUGS (1)
  1. COSENTYX [Suspect]
     Active Substance: SECUKINUMAB
     Indication: PSORIASIS
     Dosage: 150 MG(2 PENS FIRST WEEK THEN 1 PEN/WEEK FOR 4 WEEKS THEN 1 PEN PER MONTH FOR 6)
     Route: 065
     Dates: start: 202005, end: 202101

REACTIONS (3)
  - Psoriasis [Recovered/Resolved]
  - Drug ineffective [Unknown]
  - Physical deconditioning [Unknown]

NARRATIVE: CASE EVENT DATE: 202103
